FAERS Safety Report 10168041 (Version 1)
Quarter: 2014Q2

REPORT INFORMATION
  Report Type: Spontaneous
  Country: US (occurrence: US)
  Receive Date: 20140512
  Receipt Date: 20140512
  Transmission Date: 20141212
  Serious: Yes (Hospitalization, Other)
  Sender: FDA-Public Use
  Company Number: US-PFIZER INC-2014125197

PATIENT
  Age: 17 Year
  Sex: Male

DRUGS (1)
  1. SERTRALINE HCL [Suspect]
     Indication: DEPRESSION
     Dosage: UNK

REACTIONS (10)
  - Suicidal ideation [Unknown]
  - Loss of consciousness [Unknown]
  - Mental disorder [Unknown]
  - Decreased interest [Unknown]
  - Anger [Unknown]
  - Amnesia [Unknown]
  - Emotional disorder [Unknown]
  - Drug ineffective [Unknown]
  - Emotional poverty [Unknown]
  - Anxiety [Unknown]
